FAERS Safety Report 7139094-1 (Version None)
Quarter: 2010Q4

REPORT INFORMATION
  Report Type: 
  Country: None (occurrence: None)
  Receive Date: 20101206
  Receipt Date: 20101126
  Transmission Date: 20110411
  Serious: Yes (Hospitalization)
  Sender: FDA-Public Use
  Company Number: B0686169A

PATIENT
  Sex: Male
  Weight: 68 kg

DRUGS (8)
  1. LAMICTAL [Suspect]
     Indication: SIMPLE PARTIAL SEIZURES
     Route: 048
     Dates: start: 20100514, end: 20100914
  2. ALEVIATIN [Concomitant]
     Indication: SIMPLE PARTIAL SEIZURES
     Route: 048
  3. HYDANTOL [Concomitant]
     Indication: SIMPLE PARTIAL SEIZURES
     Route: 048
  4. DEPAKENE [Concomitant]
     Indication: SIMPLE PARTIAL SEIZURES
     Route: 048
  5. MEXITIL [Concomitant]
     Indication: SIMPLE PARTIAL SEIZURES
     Route: 048
  6. TOPIRAMATE [Concomitant]
     Indication: SIMPLE PARTIAL SEIZURES
     Route: 048
  7. DIAPP [Concomitant]
     Indication: SIMPLE PARTIAL SEIZURES
     Route: 054
  8. HORIZON [Concomitant]
     Indication: SIMPLE PARTIAL SEIZURES
     Route: 048

REACTIONS (3)
  - CONVULSION [None]
  - DYSKINESIA [None]
  - ENCEPHALITIS HERPES [None]
